FAERS Safety Report 5110296-9 (Version None)
Quarter: 2006Q3

REPORT INFORMATION
  Report Type: 
  Country: None (occurrence: None)
  Receive Date: 20060921
  Receipt Date: 20060810
  Transmission Date: 20061208
  Serious: Yes (Other)
  Sender: FDA-Public Use
  Company Number: 2006UW16238

PATIENT
  Age: 7796 Day
  Sex: Female

DRUGS (13)
  1. PULMICORT [Suspect]
     Indication: ASTHMA
     Route: 055
     Dates: start: 19940705, end: 19990503
  2. PULMICORT [Suspect]
     Dosage: CONTINUATION STUDY: 200 MCG 2 PUFFS/DAY (4-7 DAYS/WEEK)
     Route: 055
     Dates: start: 19991220
  3. PULMICORT [Suspect]
     Dosage: CAMPCS/2 EXTENSION STUDY
     Route: 055
     Dates: start: 20040616
  4. ALBUTEROL [Concomitant]
  5. NASAL STEROIDS [Concomitant]
     Route: 045
  6. ACYCLOVIR [Concomitant]
  7. ACCUTANE [Concomitant]
  8. AMOXICILLIN [Concomitant]
  9. VICODIN [Concomitant]
  10. CODEINE [Concomitant]
  11. ANTIBIOTIC EYE OINTMENT [Concomitant]
  12. BUDESONIDE IN NASAL PREPARATION [Concomitant]
     Route: 045
     Dates: start: 20000601
  13. ALLEGRA [Concomitant]

REACTIONS (2)
  - CATARACT SUBCAPSULAR [None]
  - DRY EYE [None]
